FAERS Safety Report 5534738-X (Version None)
Quarter: 2007Q4

REPORT INFORMATION
  Report Type: 
  Country: None (occurrence: None)
  Receive Date: 20071120
  Receipt Date: 20070731
  Transmission Date: 20080405
  Serious: No
  Sender: FDA-Public Use
  Company Number: WAES 0708USA05579

PATIENT
  Age: 55 Year
  Sex: Female
  Weight: 88.905 kg

DRUGS (2)
  1. JANUVIA [Suspect]
     Indication: BLOOD GLUCOSE
     Dosage: 100 MG/DAILY/PO
     Route: 048
     Dates: start: 20061129, end: 20061201
  2. GLUCOVANCE [Concomitant]

REACTIONS (2)
  - NAUSEA [None]
  - VOMITING [None]
